FAERS Safety Report 17256459 (Version 1)
Quarter: 2019Q4

REPORT INFORMATION
  Report Type: Spontaneous
  Country: US (occurrence: US)
  Receive Date: 20191216
  Receipt Date: 20191216
  Transmission Date: 20200122
  Serious: Yes (Life-Threatening, Hospitalization)
  Sender: FDA-Public Use
  Company Number: None

PATIENT
  Age: 71 Year
  Sex: Male
  Weight: 85 kg

DRUGS (1)
  1. WARFARIN (WARFARIN NA (EXELAN) 5MG TAB [Suspect]
     Active Substance: WARFARIN
     Indication: ATRIAL FIBRILLATION
     Dosage: ?          OTHER DOSE:TAB;?
     Route: 048
     Dates: start: 20160830, end: 20191212

REACTIONS (4)
  - Fall [None]
  - International normalised ratio abnormal [None]
  - Subdural haematoma [None]
  - Haemorrhage [None]

NARRATIVE: CASE EVENT DATE: 20191212
